FAERS Safety Report 8549150-9 (Version None)
Quarter: 2012Q3

REPORT INFORMATION
  Report Type: 
  Country: None (occurrence: None)
  Receive Date: 20120730
  Receipt Date: 20120712
  Transmission Date: 20120928
  Serious: No
  Sender: FDA-Public Use
  Company Number: US-ASTRAZENECA-2011SE41535

PATIENT
  Age: 48 Year
  Sex: Female
  Weight: 67.6 kg

DRUGS (46)
  1. NEXIUM [Suspect]
     Route: 048
     Dates: start: 20030101, end: 20110101
  2. HYDROCLORAZAZIDE/HCTZ [Concomitant]
     Dates: start: 20020516
  3. CERALAFATE [Concomitant]
     Dates: start: 20100101
  4. TOPROL-XL [Concomitant]
     Dates: start: 20090519
  5. NEXIUM [Suspect]
     Route: 048
     Dates: start: 20090514
  6. NEXIUM [Suspect]
     Route: 048
     Dates: start: 20100101
  7. VITAMIN D [Concomitant]
     Indication: VITAMIN D DEFICIENCY
  8. ZOFREN [Concomitant]
  9. PROPO N/APAP/DARVOCET [Concomitant]
     Dates: start: 20060101
  10. ARTHROTEC [Concomitant]
     Dates: start: 20060101
  11. BISACODYL [Concomitant]
     Dates: start: 20090519
  12. NEXIUM [Suspect]
     Indication: GASTROOESOPHAGEAL REFLUX DISEASE
     Route: 048
  13. PROPO N/APAP/DARVOCET [Concomitant]
     Dosage: 100-650
     Dates: start: 20020328
  14. NIFEDIPINE [Concomitant]
  15. POTASSIUM CHLORIDE ER [Concomitant]
     Dates: start: 20090519
  16. POTASSIUM CHLORIDE/K DUR [Concomitant]
     Dates: start: 20020315
  17. HYDROCHLOROTHIAZIDE [Concomitant]
     Dates: start: 20090519
  18. BONIVA [Concomitant]
     Dates: start: 20090519
  19. HYDROXYZINE HCL [Concomitant]
     Dates: start: 20090519
  20. PROTONIX [Concomitant]
  21. PEPCID [Concomitant]
     Dates: start: 20020516
  22. CALCIUM CARBONATE [Concomitant]
     Indication: CALCIUM DEFICIENCY
     Dosage: 500/200 D-3
     Dates: start: 20100101
  23. IMITREX [Concomitant]
     Indication: MIGRAINE
  24. TOMARADOLE HCL [Concomitant]
  25. ZYRTEC [Concomitant]
     Indication: MULTIPLE ALLERGIES
  26. SUDAFED 12 HOUR [Concomitant]
     Dates: start: 20060101
  27. LYRICA [Concomitant]
     Dates: start: 20090519
  28. LACTULOSE [Concomitant]
     Dates: start: 20100101
  29. OMEGA-3-ACID ETHYL ESTERS [Concomitant]
  30. NIZATIDIZINE/AXID [Concomitant]
  31. CYCLOBENZAR [Concomitant]
  32. NEXIUM [Suspect]
     Route: 048
     Dates: start: 20011201, end: 20030701
  33. PRILOSEC [Concomitant]
  34. M.V.I. [Concomitant]
     Dates: start: 20060101
  35. FOLIC ACID [Concomitant]
     Dates: start: 20100101
  36. GLYSET [Concomitant]
     Dates: start: 20100101
  37. NEXIUM [Suspect]
     Route: 048
     Dates: start: 20020405
  38. PROTONIX [Concomitant]
     Dates: start: 20090519
  39. PEPCID [Concomitant]
     Dates: start: 20060101
  40. IMITREX [Concomitant]
     Dates: start: 20060101
  41. COMPAZINE [Concomitant]
  42. HYDROCLORAZAZIDE/HCTZ [Concomitant]
     Indication: BLOOD PRESSURE
  43. KADOR [Concomitant]
  44. LYRICA [Concomitant]
     Dates: start: 20100101
  45. TOPROL-XL [Concomitant]
     Dates: start: 20100101
  46. FISH OIL [Concomitant]
     Dates: start: 20100101

REACTIONS (7)
  - CALCIUM DEFICIENCY [None]
  - OSTEOPENIA [None]
  - VOMITING [None]
  - OSTEOPOROSIS [None]
  - VITAMIN D DEFICIENCY [None]
  - MULTIPLE FRACTURES [None]
  - INTERVERTEBRAL DISC DEGENERATION [None]
